FAERS Safety Report 4798911-0 (Version None)
Quarter: 2005Q4

REPORT INFORMATION
  Report Type: 
  Country: None (occurrence: None)
  Receive Date: 20051014
  Receipt Date: 20051003
  Transmission Date: 20060501
  Serious: Yes (Hospitalization, Disabling, Other)
  Sender: FDA-Public Use
  Company Number: GB-GILEAD-2005-0008763

PATIENT
  Age: 39 Year
  Sex: Male
  Weight: 48 kg

DRUGS (6)
  1. VIREAD [Suspect]
     Indication: HIV INFECTION
     Route: 048
     Dates: start: 20050101, end: 20050801
  2. DIDANOSINE [Concomitant]
     Indication: HIV INFECTION
     Route: 048
  3. RITONAVIR [Concomitant]
     Indication: HIV INFECTION
     Route: 048
  4. ATAZANAVIR [Concomitant]
     Indication: HIV INFECTION
     Route: 048
  5. SEPTRIN [Concomitant]
     Indication: PNEUMOCYSTIS JIROVECI PNEUMONIA
     Route: 048
  6. ATORVASTATIN [Concomitant]
     Indication: BLOOD CHOLESTEROL INCREASED
     Route: 048

REACTIONS (3)
  - FANCONI SYNDROME ACQUIRED [None]
  - OSTEOMALACIA [None]
  - RENAL IMPAIRMENT [None]
